FAERS Safety Report 8811237 (Version 1)
Quarter: 2012Q4

REPORT INFORMATION
  Report Type: Spontaneous
  Country: US (occurrence: None)
  Receive Date: 20120925
  Receipt Date: 20120925
  Transmission Date: 20130627
  Serious: Yes (Other)
  Sender: FDA-Public Use
  Company Number: None

PATIENT
  Age: 70 Year
  Sex: Female
  Weight: 89.36 kg

DRUGS (1)
  1. GLIPIZIDE [Suspect]
     Dates: start: 20120312, end: 20120612

REACTIONS (2)
  - Anger [None]
  - Increased appetite [None]
